FAERS Safety Report 24354348 (Version 2)
Quarter: 2024Q3

REPORT INFORMATION
  Report Type: Report from Study
  Country: PL (occurrence: PL)
  Receive Date: 20240923
  Receipt Date: 20240925
  Transmission Date: 20241016
  Serious: Yes (Death)
  Sender: BOEHRINGER INGELHEIM
  Company Number: PL-BoehringerIngelheim-2024-BI-052776

PATIENT
  Age: 40 Year
  Sex: Female

DRUGS (1)
  1. EMPAGLIFLOZIN [Suspect]
     Active Substance: EMPAGLIFLOZIN
     Indication: Hypertrophic cardiomyopathy

REACTIONS (1)
  - Sudden cardiac death [Fatal]
